FAERS Safety Report 4646643-1 (Version None)
Quarter: 2005Q2

REPORT INFORMATION
  Report Type: 
  Country: None (occurrence: None)
  Receive Date: 20050422
  Receipt Date: 20050422
  Transmission Date: 20051028
  Serious: Yes (Hospitalization)
  Sender: FDA-Public Use
  Company Number: None

PATIENT
  Age: 39 Year
  Sex: Female
  Weight: 83 kg

DRUGS (2)
  1. SEPTRA DS [Suspect]
  2. ADALAT CC [Concomitant]

REACTIONS (2)
  - RASH [None]
  - URTICARIA [None]
